FAERS Safety Report 16337441 (Version 1)
Quarter: 2019Q2

REPORT INFORMATION
  Report Type: Spontaneous
  Country: US (occurrence: US)
  Receive Date: 20190416
  Receipt Date: 20190416
  Transmission Date: 20190711
  Serious: Yes (Disabling)
  Sender: FDA-Public Use
  Company Number: None

PATIENT
  Sex: Female

DRUGS (8)
  1. VIT D [Concomitant]
     Active Substance: VITAMIN D NOS
  2. GARLIC. [Concomitant]
     Active Substance: GARLIC
  3. LORAZEPAM 1MG TAB [Suspect]
     Active Substance: LORAZEPAM
     Indication: POST-TRAUMATIC STRESS DISORDER
     Dosage: ?          QUANTITY:0.5 MG MILLIGRAM(S);?
     Route: 048
     Dates: end: 201903
  4. LORAZEPAM 1MG TAB [Suspect]
     Active Substance: LORAZEPAM
     Indication: PANIC ATTACK
     Dosage: ?          QUANTITY:0.5 MG MILLIGRAM(S);?
     Route: 048
     Dates: end: 201903
  5. SALMON OIL [Concomitant]
     Active Substance: FISH OIL
  6. PRO-BIOTICS [Concomitant]
  7. MULTI-VITAMIN [Concomitant]
     Active Substance: .ALPHA.-TOCOPHEROL ACETATE, DL-\ASCORBIC ACID\CYANOCOBALAMIN\FLUORIDE ION\FOLIC ACID\NIACIN\PYRIDOXINE\RIBOFLAVIN\THIAMINE\VITAMIN A\VITAMIN D
  8. LORAZEPAM 1MG TAB [Suspect]
     Active Substance: LORAZEPAM
     Indication: ANXIETY DISORDER
     Dosage: ?          QUANTITY:0.5 MG MILLIGRAM(S);?
     Route: 048
     Dates: end: 201903

REACTIONS (6)
  - Product physical issue [None]
  - Condition aggravated [None]
  - Product substitution issue [None]
  - Headache [None]
  - Tremor [None]
  - Cardiac flutter [None]

NARRATIVE: CASE EVENT DATE: 20190205
